FAERS Safety Report 8500289-3 (Version None)
Quarter: 2012Q3

REPORT INFORMATION
  Report Type: 
  Country: None (occurrence: None)
  Receive Date: 20120710
  Receipt Date: 20120628
  Transmission Date: 20120928
  Serious: Yes (Hospitalization, Other)
  Sender: FDA-Public Use
  Company Number: JP-ASTRAZENECA-2012SE42049

PATIENT
  Age: 25 Year
  Sex: Male

DRUGS (7)
  1. DEPAKENE [Suspect]
  2. LENDORMIN [Suspect]
  3. RISPERDAL [Suspect]
  4. AMOBAN [Suspect]
  5. SEROQUEL [Suspect]
     Indication: DEPRESSION
     Route: 048
  6. PHENOBARBITAL TAB [Suspect]
  7. LEXOTAN [Suspect]

REACTIONS (7)
  - RHABDOMYOLYSIS [None]
  - DISSEMINATED INTRAVASCULAR COAGULATION [None]
  - BLOOD PRESSURE DECREASED [None]
  - DECUBITUS ULCER [None]
  - TOXICITY TO VARIOUS AGENTS [None]
  - MULTIPLE DRUG OVERDOSE [None]
  - PNEUMONIA ASPIRATION [None]
